FAERS Safety Report 5267833-3 (Version None)
Quarter: 2007Q1

REPORT INFORMATION
  Report Type: 
  Country: None (occurrence: None)
  Receive Date: 20070316
  Receipt Date: 20070308
  Transmission Date: 20070707
  Serious: Yes (Hospitalization)
  Sender: FDA-Public Use
  Company Number: FR-PFIZER INC-2007019010

PATIENT
  Age: 53 Year
  Sex: Female

DRUGS (8)
  1. HYDROXYZINE HYDROCHLORIDE (TABLET) [Suspect]
     Route: 048
  2. NEFOPAM HYDROCHLORIDE [Suspect]
  3. DROPERIDOL [Suspect]
  4. KETOPROFEN [Suspect]
  5. PROPOFOL [Suspect]
  6. CEFAZOLIN SODIUM [Suspect]
  7. ATRACURIUM BESYLATE [Concomitant]
  8. MORPHINE [Concomitant]

REACTIONS (2)
  - LEUKOPENIA [None]
  - NEUTROPENIA [None]
